FAERS Safety Report 4364997-0 (Version None)
Quarter: 2004Q2

REPORT INFORMATION
  Report Type: 
  Country: None (occurrence: None)
  Receive Date: 20040521
  Receipt Date: 20040511
  Transmission Date: 20050107
  Serious: Yes (Other)
  Sender: FDA-Public Use
  Company Number: 2004204363US

PATIENT
  Age: 62 Year
  Sex: Female
  Weight: 51.7 kg

DRUGS (6)
  1. XALATAN [Suspect]
     Indication: GLAUCOMA
     Dosage: SEE IMAGE
     Route: 047
     Dates: start: 20020901, end: 20030101
  2. XALATAN [Suspect]
     Indication: GLAUCOMA
     Dosage: SEE IMAGE
     Route: 047
     Dates: start: 20030403, end: 20030502
  3. XALATAN [Suspect]
     Indication: GLAUCOMA
     Dosage: SEE IMAGE
     Route: 047
     Dates: start: 20021106
  4. TIMOLOL MALEATE [Concomitant]
  5. ALPHAGAN [Concomitant]
  6. BETOPTIC [Concomitant]

REACTIONS (12)
  - CONSTIPATION [None]
  - EYE HAEMORRHAGE [None]
  - EYE PRURITUS [None]
  - EYE REDNESS [None]
  - EYELID DISORDER [None]
  - EYELID IRRITATION [None]
  - HYPERSOMNIA [None]
  - INJURY ASPHYXIATION [None]
  - INTRAOCULAR PRESSURE INCREASED [None]
  - SKIN DISCOLOURATION [None]
  - SOMNOLENCE [None]
  - VISUAL ACUITY REDUCED [None]
